FAERS Safety Report 9996823 (Version 1)
Quarter: 2014Q1

REPORT INFORMATION
  Report Type: Spontaneous
  Country: US (occurrence: None)
  Receive Date: 20140218
  Receipt Date: 20140218
  Transmission Date: 20141002
  Serious: No
  Sender: FDA-Public Use
  Company Number: 1000051512

PATIENT
  Age: 47 Year
  Sex: Female

DRUGS (5)
  1. VIIBRYD [Suspect]
     Indication: DEPRESSION
     Route: 048
     Dates: start: 201310, end: 201310
  2. VIIBRYD [Suspect]
     Indication: DEPRESSION
     Route: 048
     Dates: start: 201310, end: 201311
  3. VIIBRYD [Suspect]
     Indication: DEPRESSION
     Route: 048
     Dates: start: 201311, end: 201311
  4. VERAPAMIL (VERAPAMIL) (VERAPAMIL) [Concomitant]
  5. HYOSCYAMINE (HYOSCYAMINE) (HYOSCYAMINE) [Concomitant]

REACTIONS (9)
  - Hypersomnia [None]
  - Urinary incontinence [None]
  - Faecal incontinence [None]
  - Dizziness [None]
  - Balance disorder [None]
  - Fall [None]
  - Contusion [None]
  - Tremor [None]
  - Fatigue [None]
